FAERS Safety Report 8950252 (Version 2)
Quarter: 2013Q1

REPORT INFORMATION
  Report Type: Spontaneous
  Country: US (occurrence: US)
  Receive Date: 20121205
  Receipt Date: 20130307
  Transmission Date: 20140127
  Serious: Yes (Other)
  Sender: FDA-Public Use
  Company Number: CHPA2012US024299

PATIENT
  Age: 66 Year
  Sex: Male

DRUGS (3)
  1. EXCEDRIN MIGRAINE [Suspect]
     Indication: MIGRAINE
     Dosage: 4 PILLS A DAY
     Route: 048
     Dates: start: 2007
  2. FIORINAL [Concomitant]
  3. ZOMIG [Concomitant]

REACTIONS (2)
  - Hepatomegaly [Not Recovered/Not Resolved]
  - Overdose [Unknown]
